FAERS Safety Report 14844864 (Version 2)
Quarter: 2018Q2

REPORT INFORMATION
  Report Type: Spontaneous
  Country: US (occurrence: US)
  Receive Date: 20180504
  Receipt Date: 20180614
  Transmission Date: 20180711
  Serious: Yes (Hospitalization)
  Sender: FDA-Public Use
  Company Number: US-JNJFOC-20180426397

PATIENT
  Age: 75 Year
  Sex: Male

DRUGS (29)
  1. CINNAMON. [Concomitant]
     Active Substance: CINNAMON
  2. GABAPENTIN. [Concomitant]
     Active Substance: GABAPENTIN
  3. MECLIZINE [Concomitant]
     Active Substance: MECLIZINE HYDROCHLORIDE
  4. TOCOPHEROL [Concomitant]
     Active Substance: TOCOPHEROL
  5. ADVAIR HFA [Concomitant]
     Active Substance: FLUTICASONE PROPIONATE\SALMETEROL XINAFOATE
  6. METHOTREXATE. [Concomitant]
     Active Substance: METHOTREXATE
  7. PROMETHAZINE [Concomitant]
     Active Substance: PROMETHAZINE\PROMETHAZINE HYDROCHLORIDE
  8. IMBRUVICA [Suspect]
     Active Substance: IBRUTINIB
     Indication: MANTLE CELL LYMPHOMA
     Dosage: UNK
     Route: 065
     Dates: start: 20150102, end: 20180425
  9. FOLIC ACID. [Concomitant]
     Active Substance: FOLIC ACID
  10. SALBUTAMOL SULFATE [Concomitant]
     Active Substance: ALBUTEROL SULFATE
  11. VITAMIN B NOS [Concomitant]
     Active Substance: VITAMIN B
  12. FUROSEMIDE. [Concomitant]
     Active Substance: FUROSEMIDE
  13. AMITRIPTYLINE HYDROCHLORIDE. [Concomitant]
     Active Substance: AMITRIPTYLINE HYDROCHLORIDE
  14. AZITHROMYCIN ANHYDROUS. [Concomitant]
     Active Substance: AZITHROMYCIN ANHYDROUS
  15. FINASTERIDE. [Concomitant]
     Active Substance: FINASTERIDE
  16. NASONEX [Concomitant]
     Active Substance: MOMETASONE FUROATE
  17. PREDNISONE. [Concomitant]
     Active Substance: PREDNISONE
  18. IMBRUVICA [Suspect]
     Active Substance: IBRUTINIB
     Indication: MANTLE CELL LYMPHOMA
     Dosage: 420 MG, QD
     Route: 065
     Dates: start: 20141008
  19. AMITIZA [Concomitant]
     Active Substance: LUBIPROSTONE
  20. COLACE [Concomitant]
     Active Substance: DOCUSATE SODIUM
  21. PATANOL [Concomitant]
     Active Substance: OLOPATADINE HYDROCHLORIDE
  22. ALFUZOSIN HYDROCHLORIDE. [Concomitant]
     Active Substance: ALFUZOSIN HYDROCHLORIDE
  23. DONEPEZIL. [Concomitant]
     Active Substance: DONEPEZIL
  24. OMEPRAZOLE. [Concomitant]
     Active Substance: OMEPRAZOLE
  25. TRAZODONE [Concomitant]
     Active Substance: TRAZODONE HYDROCHLORIDE
  26. FISH OIL [Concomitant]
     Active Substance: FISH OIL
  27. LOSARTAN POTASSIUM. [Concomitant]
     Active Substance: LOSARTAN POTASSIUM
  28. LEVAQUIN [Concomitant]
     Active Substance: LEVOFLOXACIN
  29. PLAQUENIL [Concomitant]
     Active Substance: HYDROXYCHLOROQUINE SULFATE

REACTIONS (2)
  - Nasopharyngitis [Not Recovered/Not Resolved]
  - Influenza [Unknown]

NARRATIVE: CASE EVENT DATE: 20180425
